FAERS Safety Report 4387748-2 (Version None)
Quarter: 2004Q2

REPORT INFORMATION
  Report Type: 
  Country: None (occurrence: None)
  Receive Date: 20040625
  Receipt Date: 20040615
  Transmission Date: 20050107
  Serious: Yes (Other)
  Sender: FDA-Public Use
  Company Number: A-CH2004-06595

PATIENT
  Age: 57 Year
  Sex: Male
  Weight: 95 kg

DRUGS (1)
  1. TRACLEER [Suspect]
     Indication: PULMONARY HYPERTENSION
     Dosage: 62.5 MG, BID, ORAL;  125 MG, BID, ORAL
     Route: 048
     Dates: start: 20040514, end: 20040607

REACTIONS (6)
  - APHONIA [None]
  - DYSPNOEA [None]
  - HOARSENESS [None]
  - LARYNGEAL OEDEMA [None]
  - LARYNGOSPASM [None]
  - STRIDOR [None]
